FAERS Safety Report 9509766 (Version 3)
Quarter: 2014Q3

REPORT INFORMATION
  Report Type: Spontaneous
  Country: US (occurrence: US)
  Receive Date: 20130909
  Receipt Date: 20140811
  Transmission Date: 20150326
  Serious: Yes (Hospitalization, Disabling, Other)
  Sender: FDA-Public Use
  Company Number: US-009507513-1309USA001168

PATIENT
  Sex: Female
  Weight: 45.35 kg

DRUGS (1)
  1. NUVARING [Suspect]
     Active Substance: ETHINYL ESTRADIOL\ETONOGESTREL
     Indication: CONTRACEPTION
     Dosage: INSERT ONE RING VAGINALLY EVERY THREE WEEKS.
     Route: 067
     Dates: start: 200703, end: 200909

REACTIONS (8)
  - Leukocytosis [Unknown]
  - Hypertension [Unknown]
  - Vaginal haemorrhage [Unknown]
  - Transfusion [Unknown]
  - Thrombophlebitis superficial [Unknown]
  - Cervix carcinoma [Unknown]
  - Anaemia [Unknown]
  - Syncope [Unknown]

NARRATIVE: CASE EVENT DATE: 200908
